FAERS Safety Report 6131195-X (Version None)
Quarter: 2009Q1

REPORT INFORMATION
  Report Type: 
  Country: None (occurrence: None)
  Receive Date: 20090325
  Receipt Date: 20090323
  Transmission Date: 20090719
  Serious: Yes (Life-Threatening, Hospitalization)
  Sender: FDA-Public Use
  Company Number: JP-ABBOTT-09P-087-0564063-00

PATIENT
  Sex: Female

DRUGS (9)
  1. AKINETON [Suspect]
     Indication: PARKINSONISM
     Route: 048
     Dates: start: 20080902
  2. BLONANSERIN [Suspect]
     Indication: SCHIZOPHRENIA
     Route: 048
     Dates: start: 20081117, end: 20081202
  3. BLONANSERIN [Suspect]
     Route: 048
     Dates: start: 20081106, end: 20081116
  4. LULLAN [Suspect]
     Indication: SCHIZOPHRENIA
     Route: 048
     Dates: start: 20081202, end: 20081204
  5. BLONANSERIN [Concomitant]
     Route: 048
     Dates: start: 20081106, end: 20081116
  6. WYPAX [Concomitant]
     Indication: ANXIETY
     Route: 048
     Dates: start: 20080422
  7. MYSLEE [Concomitant]
     Indication: INSOMNIA
     Route: 048
     Dates: start: 20080422
  8. FLUNITRAZEPAM [Concomitant]
     Indication: INSOMNIA
     Route: 048
     Dates: start: 20080422
  9. VEGETAMIN-B (CHLORPROMAZINE_PROMETHAZINE COMBINED DRUG) [Concomitant]
     Indication: INSOMNIA
     Route: 048
     Dates: start: 20080422

REACTIONS (3)
  - EXTRAPYRAMIDAL DISORDER [None]
  - NEUROLEPTIC MALIGNANT SYNDROME [None]
  - PARKINSONISM [None]
